FAERS Safety Report 21729520 (Version 1)
Quarter: 2022Q4

REPORT INFORMATION
  Report Type: Spontaneous
  Country: FR (occurrence: FR)
  Receive Date: 20221214
  Receipt Date: 20221214
  Transmission Date: 20230113
  Serious: Yes (Death)
  Sender: FDA-Public Use
  Company Number: FR-JAZZ-2022-FR-037553

PATIENT

DRUGS (1)
  1. DEFITELIO [Suspect]
     Active Substance: DEFIBROTIDE SODIUM
     Indication: Venoocclusive disease
     Dosage: UNK

REACTIONS (4)
  - Venoocclusive disease [Fatal]
  - Condition aggravated [Fatal]
  - Drug ineffective [Fatal]
  - Off label use [Unknown]
